FAERS Safety Report 10676530 (Version 1)
Quarter: 2014Q4

REPORT INFORMATION
  Report Type: Spontaneous
  Country: JP (occurrence: JP)
  Receive Date: 20141226
  Receipt Date: 20141226
  Transmission Date: 20150529
  Serious: Yes (Other)
  Sender: FDA-Public Use
  Company Number: PHHY2014JP167016

PATIENT
  Age: 80 Year
  Sex: Female

DRUGS (1)
  1. ZOMETA [Suspect]
     Active Substance: ZOLEDRONIC ACID
     Indication: HYPERCALCAEMIA OF MALIGNANCY
     Dosage: UNK
     Route: 065
     Dates: start: 201112

REACTIONS (10)
  - Exposed bone in jaw [Unknown]
  - Swelling face [Unknown]
  - Osteomyelitis acute [Unknown]
  - Pain in jaw [Unknown]
  - Gingival abscess [Unknown]
  - Purulent discharge [Unknown]
  - Root canal infection [Unknown]
  - Hypoaesthesia oral [Unknown]
  - Osteonecrosis of jaw [Unknown]
  - Trismus [Unknown]

NARRATIVE: CASE EVENT DATE: 201405
